FAERS Safety Report 10926028 (Version 4)
Quarter: 2015Q2

REPORT INFORMATION
  Report Type: Report from Study
  Country: JP (occurrence: JP)
  Receive Date: 20150318
  Receipt Date: 20150430
  Transmission Date: 20150821
  Serious: Yes (Life-Threatening, Hospitalization)
  Sender: FDA-Public Use
  Company Number: JP-009507513-1503JPN006478

PATIENT
  Age: 72 Year
  Sex: Female

DRUGS (13)
  1. DIAZOXIDE [Suspect]
     Active Substance: DIAZOXIDE
     Dosage: 50 MG, QD
     Route: 048
     Dates: start: 20140713, end: 20140719
  2. KEPPRA [Concomitant]
     Active Substance: LEVETIRACETAM
     Indication: MENTAL IMPAIRMENT
     Dosage: 1000 MG, QD
     Route: 048
     Dates: start: 20140109, end: 20140521
  3. TEGRETOL [Concomitant]
     Active Substance: CARBAMAZEPINE
     Indication: MENTAL IMPAIRMENT
     Dosage: 1500 MG, QD
     Route: 048
     Dates: start: 20131030, end: 20140521
  4. NEODOPASTON [Concomitant]
     Active Substance: CARBIDOPA\LEVODOPA
     Indication: MENTAL IMPAIRMENT
     Dosage: 100 MG, QD
     Route: 048
     Dates: start: 20130312, end: 201403
  5. DIAZOXIDE [Suspect]
     Active Substance: DIAZOXIDE
     Dosage: 75 MG, QD (25 MG IN THE MORNING ANG 50 MG IN THE EVENING)
     Route: 048
     Dates: start: 20140720, end: 20141005
  6. DEPAKENE [Concomitant]
     Active Substance: VALPROIC ACID
     Indication: MENTAL IMPAIRMENT
     Dosage: 200 MG, QD
     Route: 048
     Dates: start: 20130807, end: 201403
  7. RIVOTRIL [Concomitant]
     Active Substance: CLONAZEPAM
     Indication: MENTAL IMPAIRMENT
     Dosage: 0.5 MG, QD
     Route: 048
     Dates: start: 20140508, end: 20140521
  8. DIAZOXIDE [Suspect]
     Active Substance: DIAZOXIDE
     Dosage: 25 MG, QD
     Route: 048
     Dates: start: 20140624, end: 20140701
  9. DIAZOXIDE [Suspect]
     Active Substance: DIAZOXIDE
     Dosage: 25 MG, BID
     Route: 048
     Dates: start: 20140618, end: 20140623
  10. DIAZOXIDE [Suspect]
     Active Substance: DIAZOXIDE
     Dosage: 50 MG, BID
     Route: 048
     Dates: start: 20141006
  11. DIAZOXIDE [Suspect]
     Active Substance: DIAZOXIDE
     Indication: HYPOGLYCAEMIA
     Dosage: 50 MG, BID
     Route: 048
     Dates: start: 20140520, end: 20140617
  12. DIAZOXIDE [Suspect]
     Active Substance: DIAZOXIDE
     Dosage: 25 MG, QD
     Route: 048
     Dates: start: 20140702, end: 20140712
  13. ATELEC [Concomitant]
     Active Substance: CILNIDIPINE
     Indication: HYPERTENSION
     Dosage: 10 MG, QD. DIVIDED DOSE FREQUENCY UNKNOWN
     Route: 048
     Dates: start: 20140423

REACTIONS (2)
  - Hyperglycaemia [Unknown]
  - Pneumonia bacterial [Recovered/Resolved]

NARRATIVE: CASE EVENT DATE: 20141128
